FAERS Safety Report 11692373 (Version 1)
Quarter: 2015Q4

REPORT INFORMATION
  Report Type: Spontaneous
  Country: US (occurrence: US)
  Receive Date: 20151103
  Receipt Date: 20151103
  Transmission Date: 20160304
  Serious: Yes (Hospitalization, Other)
  Sender: FDA-Public Use
  Company Number: US-ASTRAZENECA-2015SF04400

PATIENT
  Age: 50 Year
  Sex: Male
  Weight: 106.7 kg

DRUGS (2)
  1. FARXIGA [Suspect]
     Active Substance: DAPAGLIFLOZIN PROPANEDIOL
     Indication: TYPE 2 DIABETES MELLITUS
     Route: 048
  2. METFORMIN [Concomitant]
     Active Substance: METFORMIN HYDROCHLORIDE
     Indication: DIABETES MELLITUS

REACTIONS (7)
  - Anion gap increased [Unknown]
  - Chest pain [Recovering/Resolving]
  - Metabolic acidosis [Unknown]
  - Blood glucose increased [Unknown]
  - Dyspnoea [Recovering/Resolving]
  - Pancreatitis acute [Unknown]
  - Blood ketone body increased [Unknown]

NARRATIVE: CASE EVENT DATE: 20151026
